FAERS Safety Report 21104788 (Version 2)
Quarter: 2022Q3

REPORT INFORMATION
  Report Type: Spontaneous
  Country: JP (occurrence: JP)
  Receive Date: 20220720
  Receipt Date: 20220828
  Transmission Date: 20221027
  Serious: Yes (Death, Life-Threatening, Hospitalization, Other)
  Sender: FDA-Public Use
  Company Number: JP-CHUGAI-2022027881

PATIENT
  Age: 69 Year
  Sex: Female
  Weight: 46.5 kg

DRUGS (3)
  1. ACTEMRA [Suspect]
     Active Substance: TOCILIZUMAB
     Indication: Rheumatoid arthritis
     Dosage: ONCE EVERY FOUR TO FIVE WEEKS
     Route: 041
     Dates: start: 20121114, end: 20220615
  2. MAGNESIUM OXIDE [Concomitant]
     Active Substance: MAGNESIUM OXIDE
     Dosage: UNK
     Route: 048
  3. SENNOSIDES A AND B [Concomitant]
     Active Substance: SENNOSIDES A AND B
     Dosage: UNK
     Route: 065

REACTIONS (10)
  - Lactic acidosis [Fatal]
  - Pancytopenia [Fatal]
  - Hyperlactacidaemia [Fatal]
  - Lymphoma [Fatal]
  - Toxic skin eruption [Recovering/Resolving]
  - Platelet count decreased [Not Recovered/Not Resolved]
  - Animal bite [Unknown]
  - Osteoporosis [Unknown]
  - Hyperlipidaemia [Unknown]
  - Off label use [Unknown]

NARRATIVE: CASE EVENT DATE: 20130918
